FAERS Safety Report 11517940 (Version 3)
Quarter: 2016Q1

REPORT INFORMATION
  Report Type: Spontaneous
  Country: SG (occurrence: SG)
  Receive Date: 20150917
  Receipt Date: 20160104
  Transmission Date: 20160525
  Serious: Yes (Death, Other)
  Sender: FDA-Public Use
  Company Number: SG-BAYER-2015-417122

PATIENT
  Sex: Female

DRUGS (1)
  1. XOFIGO [Suspect]
     Active Substance: RADIUM RA-223 DICHLORIDE

REACTIONS (4)
  - Cardiac failure [None]
  - Off label use [None]
  - Pneumonitis chemical [Fatal]
  - Hypertension [None]
